FAERS Safety Report 4297458-8 (Version None)
Quarter: 2004Q1

REPORT INFORMATION
  Report Type: 
  Country: None (occurrence: None)
  Receive Date: 20040213
  Receipt Date: 20031124
  Transmission Date: 20041129
  Serious: Yes (Other)
  Sender: FDA-Public Use
  Company Number: PHEH2003US10830

PATIENT
  Age: 81 Year
  Sex: Male

DRUGS (5)
  1. DIOVAN [Suspect]
     Indication: HYPERTENSION
     Dosage: 320 MG, QD, ORAL
     Route: 048
     Dates: start: 20030701
  2. ASPIRIN [Concomitant]
  3. SIMVASTATIN [Concomitant]
  4. HYDROCHLOROTHIAZIDE [Concomitant]
  5. TIAZAC [Concomitant]

REACTIONS (4)
  - GINGIVAL PAIN [None]
  - GINGIVAL SWELLING [None]
  - SWELLING FACE [None]
  - SWOLLEN TONGUE [None]
